FAERS Safety Report 8101111-X (Version None)
Quarter: 2012Q1

REPORT INFORMATION
  Report Type: 
  Country: None (occurrence: None)
  Receive Date: 20120129
  Receipt Date: 20110908
  Transmission Date: 20120608
  Serious: No
  Sender: FDA-Public Use
  Company Number: US-ABBOTT-11P-163-0852759-00

PATIENT
  Sex: Female

DRUGS (3)
  1. PREDNISONE TAB [Concomitant]
     Indication: RHEUMATOID ARTHRITIS
  2. HUMIRA [Suspect]
     Indication: RHEUMATOID ARTHRITIS
     Route: 058
     Dates: start: 20110801
  3. CALCIUM [Concomitant]
     Indication: MINERAL SUPPLEMENTATION

REACTIONS (3)
  - OEDEMA PERIPHERAL [None]
  - PARAESTHESIA [None]
  - CHILLS [None]
